FAERS Safety Report 19433175 (Version 1)
Quarter: 2021Q2

REPORT INFORMATION
  Report Type: Spontaneous
  Country: FR (occurrence: FR)
  Receive Date: 20210617
  Receipt Date: 20210617
  Transmission Date: 20210717
  Serious: Yes (Other)
  Sender: FDA-Public Use
  Company Number: FR-PFIZER INC-2021670211

PATIENT
  Age: 20 Year
  Sex: Female

DRUGS (6)
  1. PIROXICAM MYLAN [Suspect]
     Active Substance: PIROXICAM
     Indication: PAIN
     Dosage: UNK
     Route: 048
     Dates: start: 202011
  2. ETHINYLESTRADIOL/LEVONORGESTREL [Suspect]
     Active Substance: ETHINYL ESTRADIOL\LEVONORGESTREL
     Indication: CONTRACEPTION
     Dosage: UNK
     Route: 048
     Dates: start: 201810
  3. KEVZARA [Suspect]
     Active Substance: SARILUMAB
     Indication: RHEUMATOID ARTHRITIS
     Dosage: 200 MG BIWEEKLY
     Dates: start: 20210308
  4. SOLUPRED                           /00016201/ [Concomitant]
     Active Substance: PREDNISOLONE
     Dosage: UNK
  5. EBASTINE [Concomitant]
     Active Substance: EBASTINE
     Dosage: UNK
  6. PANTOPRAZOLE MYLAN [Suspect]
     Active Substance: PANTOPRAZOLE SODIUM
     Indication: ABDOMINAL PAIN UPPER
     Dosage: 1/DAY 3 TO 4 DAYS
     Route: 048
     Dates: start: 200211

REACTIONS (6)
  - Mobility decreased [Not Recovered/Not Resolved]
  - Pain in extremity [Recovered/Resolved]
  - Mouth ulceration [Not Recovered/Not Resolved]
  - Aphthous ulcer [Not Recovered/Not Resolved]
  - Injection site erythema [Recovered/Resolved]
  - Injection site oedema [Recovered/Resolved]
